FAERS Safety Report 24638534 (Version 1)
Quarter: 2024Q4

REPORT INFORMATION
  Report Type: Spontaneous
  Country: CA (occurrence: CA)
  Receive Date: 20241119
  Receipt Date: 20241119
  Transmission Date: 20250114
  Serious: Yes (Other)
  Sender: TEVA
  Company Number: CA-TEVA-VS-3264701

PATIENT
  Age: 71 Year
  Sex: Female

DRUGS (3)
  1. PIRFENIDONE [Suspect]
     Active Substance: PIRFENIDONE
     Indication: Idiopathic pulmonary fibrosis
     Dosage: TIME INTERVAL: 0.33333333 DAYS: DOSE FORM: NOT SPECIFIED
     Route: 048
  2. PIRFENIDONE [Suspect]
     Active Substance: PIRFENIDONE
     Indication: Idiopathic pulmonary fibrosis
     Dosage: TIME INTERVAL: 0.33333333 DAYS
     Route: 065
  3. RITUXIMAB [Suspect]
     Active Substance: RITUXIMAB
     Indication: Idiopathic pulmonary fibrosis
     Dosage: TIME INTERVAL: 0.33333333 DAYS
     Route: 048

REACTIONS (2)
  - Dizziness [Unknown]
  - Pyelonephritis [Unknown]
